FAERS Safety Report 17916514 (Version 1)
Quarter: 2020Q2

REPORT INFORMATION
  Report Type: Report from Study
  Country: US (occurrence: US)
  Receive Date: 20200619
  Receipt Date: 20200619
  Transmission Date: 20200714
  Serious: No
  Sender: FDA-Public Use
  Company Number: US-KYOWAKIRIN-2020BKK010111

PATIENT

DRUGS (3)
  1. CRYSVITA [Suspect]
     Active Substance: BUROSUMAB-TWZA
     Dosage: 60 MG, 1X/2 WEEKS
     Route: 065
     Dates: start: 20180802
  2. CENTRUM FOR WOMEN [Suspect]
     Active Substance: VITAMINS
     Indication: PRODUCT USED FOR UNKNOWN INDICATION
     Dosage: UNK
     Route: 065
  3. CRYSVITA [Suspect]
     Active Substance: BUROSUMAB-TWZA
     Indication: PRODUCT USED FOR UNKNOWN INDICATION
     Dosage: RECENT DOSE INCREASE
     Route: 065
     Dates: start: 2020

REACTIONS (4)
  - Vitamin E increased [Unknown]
  - Blood sodium increased [Unknown]
  - Blood calcium increased [Unknown]
  - Vitamin D increased [Unknown]

NARRATIVE: CASE EVENT DATE: 2020
